FAERS Safety Report 13525843 (Version 1)
Quarter: 2017Q2

REPORT INFORMATION
  Report Type: Spontaneous
  Country: US (occurrence: US)
  Receive Date: 20170508
  Receipt Date: 20170508
  Transmission Date: 20170830
  Serious: Yes (Hospitalization)
  Sender: FDA-Public Use
  Company Number: None

PATIENT
  Age: 79 Year
  Sex: Male

DRUGS (2)
  1. WARFARIN [Suspect]
     Active Substance: WARFARIN
     Indication: MITRAL VALVE INCOMPETENCE
     Route: 048
     Dates: start: 20150601, end: 20160705
  2. WARFARIN [Suspect]
     Active Substance: WARFARIN
     Indication: ATRIAL FIBRILLATION
     Route: 048
     Dates: start: 20150601, end: 20160705

REACTIONS (14)
  - Haemorrhoids [None]
  - Oesophagitis [None]
  - Normochromic normocytic anaemia [None]
  - Weight decreased [None]
  - Acquired oesophageal web [None]
  - Chronic obstructive pulmonary disease [None]
  - Gastrointestinal haemorrhage [None]
  - Gastrooesophageal reflux disease [None]
  - Colon adenoma [None]
  - Serum ferritin decreased [None]
  - Diverticulum intestinal [None]
  - Diverticulitis [None]
  - Hiatus hernia [None]
  - Gastritis [None]

NARRATIVE: CASE EVENT DATE: 20170207
